FAERS Safety Report 17006609 (Version 1)
Quarter: 2019Q4

REPORT INFORMATION
  Report Type: Spontaneous
  Country: US (occurrence: US)
  Receive Date: 20191106
  Receipt Date: 20191106
  Transmission Date: 20200122
  Serious: Yes (Death)
  Sender: FDA-Public Use
  Company Number: None

PATIENT
  Age: 80 Year
  Sex: Male

DRUGS (10)
  1. ISOSORBIDE. [Concomitant]
     Active Substance: ISOSORBIDE
  2. LASIX [Concomitant]
     Active Substance: FUROSEMIDE
  3. PROSTEON [Concomitant]
     Active Substance: MINERALS
  4. ZYTIGA [Suspect]
     Active Substance: ABIRATERONE ACETATE
     Route: 048
  5. MINOXIDAL [Concomitant]
  6. NIFEDIPINE. [Concomitant]
     Active Substance: NIFEDIPINE
  7. ULORIC [Concomitant]
     Active Substance: FEBUXOSTAT
  8. LEVOTHYROXINE. [Concomitant]
     Active Substance: LEVOTHYROXINE
  9. PRAVASTATIN. [Concomitant]
     Active Substance: PRAVASTATIN
  10. GLIPIZIDE. [Concomitant]
     Active Substance: GLIPIZIDE

REACTIONS (1)
  - Death [None]

NARRATIVE: CASE EVENT DATE: 20191105
